FAERS Safety Report 14642663 (Version 1)
Quarter: 2018Q1

REPORT INFORMATION
  Report Type: Spontaneous
  Country: US (occurrence: US)
  Receive Date: 20180315
  Receipt Date: 20180315
  Transmission Date: 20180509
  Serious: Yes (Hospitalization)
  Sender: FDA-Public Use
  Company Number: US-CELGENEUS-USA-20180304237

PATIENT
  Age: 11 Year
  Sex: Male

DRUGS (5)
  1. THALOMID [Suspect]
     Active Substance: THALIDOMIDE
     Indication: GLIONEURONAL TUMOUR
     Dosage: 100 MILLIGRAM
     Route: 048
     Dates: start: 201603
  2. THALOMID [Suspect]
     Active Substance: THALIDOMIDE
     Dosage: 200 MILLIGRAM
     Route: 048
     Dates: start: 201802
  3. THALOMID [Suspect]
     Active Substance: THALIDOMIDE
     Dosage: 500 MILLIGRAM
     Route: 048
     Dates: start: 201802
  4. THALOMID [Suspect]
     Active Substance: THALIDOMIDE
     Dosage: 150MG-600MG
     Route: 048
     Dates: start: 201604
  5. THALOMID [Suspect]
     Active Substance: THALIDOMIDE
     Dosage: 550 MILLIGRAM
     Route: 048
     Dates: start: 20161215

REACTIONS (1)
  - Glioneuronal tumour [Unknown]

NARRATIVE: CASE EVENT DATE: 20180220
